FAERS Safety Report 9033619 (Version 2)
Quarter: 2013Q1

REPORT INFORMATION
  Report Type: Report from Study
  Country: DE (occurrence: DE)
  Receive Date: 20130128
  Receipt Date: 20130312
  Transmission Date: 20140127
  Serious: Yes (Death, Hospitalization)
  Sender: FDA-Public Use
  Company Number: DE-AMGEN-DEUCT2013003683

PATIENT
  Age: 64 Year
  Sex: Male
  Weight: 59 kg

DRUGS (3)
  1. ETANERCEPT [Suspect]
     Indication: PSORIASIS
     Dosage: UNK
     Dates: start: 20090525, end: 20091111
  2. FUMADERM [Suspect]
     Indication: PSORIASIS
     Dosage: UNK
     Dates: start: 20090923
  3. HUMIRA [Concomitant]
     Indication: PSORIASIS
     Dosage: 40 MG, UNK
     Route: 058
     Dates: start: 20091120

REACTIONS (6)
  - Systemic inflammatory response syndrome [Fatal]
  - Septic shock [Fatal]
  - Renal failure [Fatal]
  - Chronic obstructive pulmonary disease [Fatal]
  - Acute respiratory failure [Fatal]
  - Cor pulmonale [Fatal]
